FAERS Safety Report 6620960-8 (Version None)
Quarter: 2010Q1

REPORT INFORMATION
  Report Type: 
  Country: None (occurrence: None)
  Receive Date: 20100309
  Receipt Date: 20100304
  Transmission Date: 20100710
  Serious: Yes (Other)
  Sender: FDA-Public Use
  Company Number: CHPA2010US04502

PATIENT
  Age: 90 Year
  Sex: Female
  Weight: 50.794 kg

DRUGS (8)
  1. MAALOX ADV MAXIMUM STRENGTH ANTACID/ANTIGAS (NCH) [Suspect]
     Indication: ABDOMINAL DISTENSION
     Dosage: UNK, BID
     Route: 048
  2. MAALOX ADV MAXIMUM STRENGTH ANTACID/ANTIGAS (NCH) [Suspect]
     Indication: DYSPEPSIA
  3. MAALOX ADV MAXIMUM STRENGTH ANTACID/ANTIGAS (NCH) [Suspect]
     Indication: CONSTIPATION
  4. MAALOX ADV MAXIMUM STRENGTH ANTACID/ANTIGAS (NCH) [Suspect]
  5. MAALOX UNKNOWN (NCH) [Suspect]
     Indication: ABDOMINAL DISTENSION
     Dosage: UNK, UNK
     Route: 048
  6. MAALOX UNKNOWN (NCH) [Suspect]
     Indication: DYSPEPSIA
  7. MAALOX UNKNOWN (NCH) [Suspect]
     Indication: CONSTIPATION
  8. COUMADIN [Concomitant]
     Indication: ANTICOAGULANT THERAPY
     Dosage: UNK, UNK
     Route: 048

REACTIONS (6)
  - DRUG DEPENDENCE [None]
  - EAR INFECTION [None]
  - INTENTIONAL DRUG MISUSE [None]
  - MALAISE [None]
  - OFF LABEL USE [None]
  - THERAPEUTIC RESPONSE UNEXPECTED [None]
